FAERS Safety Report 6654921-X (Version None)
Quarter: 2010Q1

REPORT INFORMATION
  Report Type: 
  Country: None (occurrence: None)
  Receive Date: 20100329
  Receipt Date: 20100322
  Transmission Date: 20100710
  Serious: No
  Sender: FDA-Public Use
  Company Number: US-BIOGENIDEC-2010BI009919

PATIENT
  Age: 57 Year
  Sex: Male

DRUGS (2)
  1. TYSABRI [Suspect]
     Indication: MULTIPLE SCLEROSIS
     Route: 042
     Dates: start: 20050112, end: 20050201
  2. TYSABRI [Suspect]
     Route: 042
     Dates: start: 20061018

REACTIONS (3)
  - COORDINATION ABNORMAL [None]
  - HYPOAESTHESIA [None]
  - INFLAMMATION [None]
